FAERS Safety Report 24302161 (Version 2)
Quarter: 2024Q4

REPORT INFORMATION
  Report Type: Spontaneous
  Country: US (occurrence: US)
  Receive Date: 20240910
  Receipt Date: 20241209
  Transmission Date: 20250114
  Serious: No
  Sender: BRISTOL-MYERS SQUIBB COMPANY
  Company Number: US-BRISTOL-MYERS SQUIBB COMPANY-2024-143705

PATIENT
  Age: 41 Year
  Sex: Female

DRUGS (2)
  1. OPDIVO [Suspect]
     Active Substance: NIVOLUMAB
     Indication: Anal cancer
     Dosage: VIAL
     Route: 042
     Dates: start: 20240508
  2. YERVOY [Suspect]
     Active Substance: IPILIMUMAB
     Indication: Anal cancer
     Dosage: VIAL
     Route: 042
     Dates: start: 20240509

REACTIONS (1)
  - Off label use [Unknown]

NARRATIVE: CASE EVENT DATE: 20240508
